APPROVED DRUG PRODUCT: LIDOCAINE HYDROCHLORIDE
Active Ingredient: LIDOCAINE HYDROCHLORIDE
Strength: 1%
Dosage Form/Route: INJECTABLE;INJECTION
Application: A214267 | Product #001 | TE Code: AP
Applicant: YILING PHARMACEUTICAL LTD
Approved: Sep 19, 2022 | RLD: No | RS: No | Type: RX